FAERS Safety Report 10756874 (Version 2)
Quarter: 2015Q1

REPORT INFORMATION
  Report Type: Spontaneous
  Country: US (occurrence: US)
  Receive Date: 20150203
  Receipt Date: 20150216
  Transmission Date: 20150721
  Serious: Yes (Death)
  Sender: FDA-Public Use
  Company Number: US-AMGEN-USASP2015007918

PATIENT
  Age: 65 Year
  Sex: Male
  Weight: 110.66 kg

DRUGS (2)
  1. FIRMAGON [Concomitant]
     Active Substance: DEGARELIX ACETATE
     Indication: PROSTATE CANCER
     Dosage: 80 UNK, QD
     Dates: start: 201310
  2. PROLIA [Suspect]
     Active Substance: DENOSUMAB
     Indication: PRODUCT USED FOR UNKNOWN INDICATION
     Dosage: 60 MG, ONCE
     Route: 030
     Dates: start: 20140116

REACTIONS (2)
  - Prostate cancer [Fatal]
  - Incorrect route of drug administration [Unknown]
